FAERS Safety Report 6653312-5 (Version None)
Quarter: 2010Q1

REPORT INFORMATION
  Report Type: 
  Country: None (occurrence: None)
  Receive Date: 20100326
  Receipt Date: 20100318
  Transmission Date: 20100710
  Serious: Yes (Hospitalization, Other)
  Sender: FDA-Public Use
  Company Number: GB-BAXTER-2010BH007804

PATIENT
  Age: 11 Year
  Sex: Male

DRUGS (1)
  1. SUPRANE [Suspect]
     Indication: GENERAL ANAESTHESIA
     Route: 065

REACTIONS (3)
  - EPILEPSY [None]
  - INTRACRANIAL PRESSURE INCREASED [None]
  - SOMNOLENCE [None]
